FAERS Safety Report 12788784 (Version 1)
Quarter: 2016Q3

REPORT INFORMATION
  Report Type: Spontaneous
  Country: US (occurrence: US)
  Receive Date: 20160928
  Receipt Date: 20160928
  Transmission Date: 20161109
  Serious: No
  Sender: FDA-Public Use
  Company Number: US-BAYER-2016-184263

PATIENT
  Age: 1 Year
  Sex: Male
  Weight: 10.43 kg

DRUGS (1)
  1. MIRALAX [Suspect]
     Active Substance: POLYETHYLENE GLYCOL 3350
     Indication: GASTROINTESTINAL DISORDER
     Dosage: UNK 1/4 DOSE OUT OF NORMAL
     Route: 048
     Dates: start: 20160921, end: 20160921

REACTIONS (1)
  - Product use issue [None]

NARRATIVE: CASE EVENT DATE: 20160921
